FAERS Safety Report 26174183 (Version 2)
Quarter: 2025Q4

REPORT INFORMATION
  Report Type: Report from Study
  Country: IN (occurrence: IN)
  Receive Date: 20251218
  Receipt Date: 20251224
  Transmission Date: 20260117
  Serious: Yes (Hospitalization, Other)
  Sender: Vantive US Healthcare
  Company Number: IN-VANTIVE-2024VAN019853

PATIENT
  Age: 76 Year
  Sex: Female

DRUGS (2)
  1. DIANEAL PD-2 PERITONEAL DIALYSIS SOLUTION WITH DEXTROSE [Suspect]
     Active Substance: CALCIUM CHLORIDE\DEXTROSE\MAGNESIUM CHLORIDE\SODIUM CHLORIDE\SODIUM LACTATE
     Indication: Renal failure
     Dosage: 3 BAGS PER DAY
  2. DIANEAL PD-2 PERITONEAL DIALYSIS SOLUTION WITH DEXTROSE [Suspect]
     Active Substance: CALCIUM CHLORIDE\DEXTROSE\MAGNESIUM CHLORIDE\SODIUM CHLORIDE\SODIUM LACTATE
     Dosage: 4 BAGS PER DAY (DOSE INCREASED)

REACTIONS (8)
  - Hypervolaemia [Recovering/Resolving]
  - Peritonitis [Recovered/Resolved]
  - Abdominal pain [Recovered/Resolved]
  - Peritoneal cloudy effluent [Recovered/Resolved]
  - Dyspnoea [Recovering/Resolving]
  - Peritoneal dialysis complication [Recovered/Resolved]
  - Inadequate peritoneal dialysis [Recovered/Resolved]
  - Product supply issue [Unknown]

NARRATIVE: CASE EVENT DATE: 20240920
